FAERS Safety Report 17490743 (Version 1)
Quarter: 2020Q1

REPORT INFORMATION
  Report Type: Spontaneous
  Country: US (occurrence: US)
  Receive Date: 20200303
  Receipt Date: 20200303
  Transmission Date: 20200409
  Serious: No
  Sender: FDA-Public Use
  Company Number: US-AKORN PHARMACEUTICALS-2019AKN00143

PATIENT
  Sex: Female

DRUGS (3)
  1. UNSPECIFIED NIGHT CREAM [Concomitant]
     Dosage: UNK, 1X/DAY AT NIGHT
  2. MYORISAN [Suspect]
     Active Substance: ISOTRETINOIN
     Dosage: UNK, 1X/DAY IN THE MORNING
     Dates: start: 20190119
  3. UNSPECIFIED MORNING CREAM [Suspect]
     Active Substance: UNSPECIFIED INGREDIENT
     Dosage: UNK, 1X/DAY IN THE MORNING

REACTIONS (5)
  - Abdominal pain [Unknown]
  - Application site burn [Unknown]
  - Application site irritation [Unknown]
  - Chest pain [Unknown]
  - Application site erythema [Unknown]

NARRATIVE: CASE EVENT DATE: 2019
